FAERS Safety Report 8886195 (Version 2)
Quarter: 2012Q4

REPORT INFORMATION
  Report Type: Report from Study
  Country: AU (occurrence: AU)
  Receive Date: 20121105
  Receipt Date: 20121130
  Transmission Date: 20130627
  Serious: Yes (Hospitalization)
  Sender: FDA-Public Use
  Company Number: AU-JNJFOC-20121101775

PATIENT
  Age: 83 Year
  Sex: Male
  Weight: 61 kg

DRUGS (13)
  1. XARELTO [Suspect]
     Indication: ATRIAL FIBRILLATION
     Route: 048
     Dates: start: 20120911, end: 20121005
  2. XARELTO [Suspect]
     Indication: CEREBROVASCULAR ACCIDENT PROPHYLAXIS
     Route: 048
     Dates: start: 20120911, end: 20121005
  3. CARDIZEM [Concomitant]
  4. CIPRAMIL [Concomitant]
     Indication: DEPRESSION
  5. DUROGESIC [Concomitant]
  6. EPILIM [Concomitant]
  7. LASIX [Concomitant]
  8. LIPITOR [Concomitant]
     Indication: HYPERCHOLESTEROLAEMIA
  9. NEXIUM [Concomitant]
  10. PANADOL [Concomitant]
     Indication: HYPERCHOLESTEROLAEMIA
  11. SERETIDE [Concomitant]
     Indication: ASTHMA
  12. SPIRIVA [Concomitant]
  13. TRANSDERM NITRO [Concomitant]

REACTIONS (9)
  - Oedema peripheral [Unknown]
  - Acute myocardial infarction [Recovered/Resolved]
  - Fall [Unknown]
  - Chest pain [Recovered/Resolved]
  - Dyspnoea [Unknown]
  - Weight decreased [Unknown]
  - Arthralgia [Unknown]
  - Hyponatraemia [Recovering/Resolving]
  - Hypovolaemia [Unknown]
